FAERS Safety Report 4415503-3 (Version None)
Quarter: 2004Q3

REPORT INFORMATION
  Report Type: 
  Country: None (occurrence: None)
  Receive Date: 20040729
  Receipt Date: 20040713
  Transmission Date: 20050211
  Serious: Yes (Disabling)
  Sender: FDA-Public Use
  Company Number: US-JNJFOC-20030902151

PATIENT
  Age: 40 Year
  Sex: Female
  Weight: 54.4316 kg

DRUGS (4)
  1. LEVAQUIN [Suspect]
     Indication: INFECTION
     Dosage: 500 MG, 1 IN 1 DAY, ORAL
     Route: 048
     Dates: start: 20030723, end: 20030728
  2. LEVAQUIN [Suspect]
     Indication: SINUSITIS
     Dosage: 500 MG, 1 IN 1 DAY, ORAL
     Route: 048
     Dates: start: 20030723, end: 20030728
  3. VITAMINS ( ) VITAMINS [Concomitant]
  4. ESTROGEN ( ) ESTROGEN NOS [Concomitant]

REACTIONS (12)
  - ARTHRITIS REACTIVE [None]
  - CARPAL TUNNEL SYNDROME [None]
  - CYST [None]
  - ERYTHEMA [None]
  - HYPOAESTHESIA [None]
  - IMPAIRED WORK ABILITY [None]
  - MUSCULOSKELETAL STIFFNESS [None]
  - MYALGIA [None]
  - OEDEMA PERIPHERAL [None]
  - PAIN IN EXTREMITY [None]
  - PARAESTHESIA [None]
  - REFLEX SYMPATHETIC DYSTROPHY [None]
